FAERS Safety Report 5514937-3 (Version None)
Quarter: 2007Q4

REPORT INFORMATION
  Report Type: 
  Country: None (occurrence: None)
  Receive Date: 20071113
  Receipt Date: 20061013
  Transmission Date: 20080405
  Serious: No
  Sender: FDA-Public Use
  Company Number: A0623542A

PATIENT
  Age: 76 Year
  Sex: Female

DRUGS (7)
  1. COREG [Suspect]
     Indication: LEFT VENTRICULAR DYSFUNCTION
     Dosage: 6.25MG TWICE PER DAY
     Route: 048
  2. AMIODARONE HCL [Concomitant]
  3. LASIX [Concomitant]
  4. COZAAR [Concomitant]
  5. SIMVASTATIN [Concomitant]
  6. DARVOCET [Concomitant]
  7. ASPIRIN [Concomitant]

REACTIONS (4)
  - ASTHENIA [None]
  - DRUG INEFFECTIVE [None]
  - FATIGUE [None]
  - INSOMNIA [None]
